FAERS Safety Report 18773188 (Version 1)
Quarter: 2021Q1

REPORT INFORMATION
  Report Type: Spontaneous
  Country: US (occurrence: US)
  Receive Date: 20210121
  Receipt Date: 20210121
  Transmission Date: 20210419
  Serious: Yes (Hospitalization)
  Sender: FDA-Public Use
  Company Number: None

PATIENT
  Age: 93 Year
  Sex: Male
  Weight: 78 kg

DRUGS (1)
  1. METFORMIN (METFORMIN HCL 850MG TAB) [Suspect]
     Active Substance: METFORMIN HYDROCHLORIDE
     Indication: DIABETES MELLITUS
     Route: 048
     Dates: start: 20021009, end: 20201120

REACTIONS (5)
  - Fall [None]
  - Asthenia [None]
  - Dehydration [None]
  - Lactic acidosis [None]
  - Haematuria [None]

NARRATIVE: CASE EVENT DATE: 20201118
